FAERS Safety Report 9262745 (Version 1)
Quarter: 2013Q2

REPORT INFORMATION
  Report Type: Spontaneous
  Country: US (occurrence: None)
  Receive Date: 20130426
  Receipt Date: 20130426
  Transmission Date: 20140414
  Serious: Yes (Hospitalization)
  Sender: FDA-Public Use
  Company Number: None

PATIENT
  Age: 50 Year
  Sex: Male
  Weight: 102 kg

DRUGS (2)
  1. PREDNISONE [Suspect]
  2. RITUXIMAB [Suspect]

REACTIONS (2)
  - Urosepsis [None]
  - Escherichia sepsis [None]
